FAERS Safety Report 8604290-0 (Version None)
Quarter: 2012Q3

REPORT INFORMATION
  Report Type: 
  Country: None (occurrence: None)
  Receive Date: 20120808
  Receipt Date: 20120808
  Transmission Date: 20120928
  Serious: Yes (Hospitalization)
  Sender: FDA-Public Use
  Company Number: None

PATIENT
  Sex: Female
  Weight: 58.6 kg

DRUGS (1)
  1. LEVETIRACETAM [Suspect]
     Indication: CONVULSION
     Dosage: 500MG AM AND 250MG PM DAILY PO
     Route: 048
     Dates: start: 20090101

REACTIONS (3)
  - HYPOPHAGIA [None]
  - POSTURE ABNORMAL [None]
  - PANCREATITIS ACUTE [None]
